FAERS Safety Report 25968974 (Version 1)
Quarter: 2025Q4

REPORT INFORMATION
  Report Type: Spontaneous
  Country: AU (occurrence: AU)
  Receive Date: 20251028
  Receipt Date: 20251028
  Transmission Date: 20260118
  Serious: Yes (Life-Threatening, Other)
  Sender: TEVA
  Company Number: AU-Pharmaand-2025001081

PATIENT
  Age: 84 Year
  Sex: Female

DRUGS (2)
  1. RIBOMUSTIN [Suspect]
     Active Substance: BENDAMUSTINE HYDROCHLORIDE
     Indication: Follicular lymphoma
     Dosage: BENDAMUSTINE HYDROCHLORIDE
     Route: 042
     Dates: start: 202304, end: 202310
  2. RITUXIMAB [Suspect]
     Active Substance: RITUXIMAB
     Indication: Follicular lymphoma
     Route: 065
     Dates: start: 202304, end: 202310

REACTIONS (2)
  - Follicular lymphoma [Not Recovered/Not Resolved]
  - Disease progression [Not Recovered/Not Resolved]
